FAERS Safety Report 12181513 (Version 3)
Quarter: 2016Q1

REPORT INFORMATION
  Report Type: Spontaneous
  Country: US (occurrence: US)
  Receive Date: 20160315
  Receipt Date: 20160323
  Transmission Date: 20160526
  Serious: Yes (Other)
  Sender: FDA-Public Use
  Company Number: US-GILEAD-2016-0203663

PATIENT
  Age: 72 Year
  Sex: Female

DRUGS (1)
  1. RANEXA [Suspect]
     Active Substance: RANOLAZINE
     Indication: ANGINA PECTORIS
     Dosage: 500 MG, UNK
     Route: 048

REACTIONS (8)
  - Dysphagia [Unknown]
  - Oesophageal disorder [Unknown]
  - Product physical issue [Unknown]
  - Cardiac disorder [Unknown]
  - Arterial stent insertion [Unknown]
  - Wrong technique in product usage process [Unknown]
  - Physical product label issue [Unknown]
  - Throat irritation [Unknown]

NARRATIVE: CASE EVENT DATE: 2016
